FAERS Safety Report 14313145 (Version 1)
Quarter: 2017Q4

REPORT INFORMATION
  Report Type: Spontaneous
  Country: CL (occurrence: CL)
  Receive Date: 20171221
  Receipt Date: 20171221
  Transmission Date: 20180321
  Serious: Yes (Death, Other)
  Sender: FDA-Public Use
  Company Number: CL-BAYER-2017-242582

PATIENT
  Sex: Female

DRUGS (1)
  1. ACETYLSALICYLIC ACID({=100 MG) [Suspect]
     Active Substance: ASPIRIN
     Indication: PLACENTAL DYSPLASIA
     Dosage: UNK

REACTIONS (8)
  - Proteinuria [None]
  - Contraindicated product administered [None]
  - Product use in unapproved indication [None]
  - Death [Fatal]
  - Hypertension [None]
  - Headache [None]
  - Off label use [None]
  - Exposure during pregnancy [None]
